FAERS Safety Report 10643805 (Version 2)
Quarter: 2017Q2

REPORT INFORMATION
  Report Type: Spontaneous
  Country: NL (occurrence: NL)
  Receive Date: 20141210
  Receipt Date: 20170525
  Transmission Date: 20170829
  Serious: Yes (Other)
  Sender: FDA-Public Use
  Company Number: NL-ALEXION PHARMACEUTICALS INC.-A201404604

PATIENT
  Sex: Female

DRUGS (4)
  1. SOLIRIS [Suspect]
     Active Substance: ECULIZUMAB
     Indication: HAEMOLYTIC URAEMIC SYNDROME
     Dosage: 1200 MG, Q2W
     Route: 042
  2. SOLIRIS [Suspect]
     Active Substance: ECULIZUMAB
     Dosage: 900 MG, Q2W
     Route: 042
  3. SOLIRIS [Suspect]
     Active Substance: ECULIZUMAB
     Dosage: 900 MG, QMONTH, EVERY 28 DAYS
     Route: 042
  4. SOLIRIS [Suspect]
     Active Substance: ECULIZUMAB
     Dosage: 900 MG, Q3W, EVERY 21 DAYS
     Route: 042

REACTIONS (6)
  - Myalgia [Recovered/Resolved]
  - Headache [Recovered/Resolved]
  - Hypersensitivity [Unknown]
  - Nausea [Recovered/Resolved]
  - Incorrect dose administered [Unknown]
  - Inappropriate schedule of drug administration [Unknown]
